FAERS Safety Report 6343061-5 (Version None)
Quarter: 2009Q3

REPORT INFORMATION
  Report Type: 
  Country: None (occurrence: None)
  Receive Date: 20090908
  Receipt Date: 20090901
  Transmission Date: 20100115
  Serious: Yes (Other)
  Sender: FDA-Public Use
  Company Number: US-WYE-H10823309

PATIENT
  Sex: Female

DRUGS (1)
  1. TYGACIL [Suspect]
     Indication: INFECTION
     Dosage: UNKNOWN
     Route: 042
     Dates: start: 20090830

REACTIONS (2)
  - BRONCHOSPASM [None]
  - DYSPNOEA [None]
